FAERS Safety Report 5964298-0 (Version None)
Quarter: 2008Q4

REPORT INFORMATION
  Report Type: 
  Country: None (occurrence: None)
  Receive Date: 20081124
  Receipt Date: 20081117
  Transmission Date: 20090506
  Serious: Yes (Hospitalization, Other)
  Sender: FDA-Public Use
  Company Number: US-PFIZER INC-2008059974

PATIENT
  Sex: Female
  Weight: 47.2 kg

DRUGS (24)
  1. XANAX [Suspect]
  2. LIPITOR [Suspect]
  3. LYRICA [Suspect]
     Indication: FIBROMYALGIA
     Dates: start: 20080613
  4. LYRICA [Suspect]
     Indication: ARTHRITIS
  5. LYRICA [Suspect]
     Indication: INTERVERTEBRAL DISC DISORDER
  6. ALL OTHER THERAPEUTIC PRODUCTS [Concomitant]
  7. GLUCOSAMINE [Concomitant]
  8. CALCIUM [Concomitant]
  9. ACETYLSALICYLIC ACID SRT [Concomitant]
  10. BENAZEPRIL HYDROCHLORIDE [Concomitant]
     Indication: HYPERTENSION
  11. TRIAZOLAM [Concomitant]
     Indication: RESTLESS LEGS SYNDROME
  12. DIAZEPAM [Concomitant]
     Indication: ECZEMA
  13. DIAZEPAM [Concomitant]
     Indication: DERMATITIS
  14. DIAZEPAM [Concomitant]
     Indication: RASH
  15. DIAZEPAM [Concomitant]
     Indication: URTICARIA
  16. DIPHENOXYLATE W/ATROPINE SULFATE [Concomitant]
     Indication: DIARRHOEA
  17. LEVOTHROID [Concomitant]
     Indication: HYPOTHYROIDISM
  18. CORTISONE ACETATE TAB [Concomitant]
  19. OMEPRAZOLE [Concomitant]
  20. HYDROCODONE BITARTRATE + ACETAMINOPHEN [Concomitant]
  21. ASCORBIC ACID [Concomitant]
  22. VITAMIN D [Concomitant]
  23. VITAMIN D [Concomitant]
  24. AVELOX [Concomitant]
     Indication: BRONCHITIS
     Dosage: DAILY DOSE:400MG

REACTIONS (14)
  - BLOOD POTASSIUM DECREASED [None]
  - CARPAL TUNNEL SYNDROME [None]
  - CHILLS [None]
  - DEHYDRATION [None]
  - DERMATITIS [None]
  - DIARRHOEA [None]
  - DYSPNOEA [None]
  - ECZEMA [None]
  - EYE ALLERGY [None]
  - HYPERSENSITIVITY [None]
  - OEDEMA [None]
  - PRURITUS [None]
  - ROTATOR CUFF REPAIR [None]
  - URTICARIA [None]
